FAERS Safety Report 22147690 (Version 1)
Quarter: 2023Q1

REPORT INFORMATION
  Report Type: Spontaneous
  Country: MX (occurrence: MX)
  Receive Date: 20230328
  Receipt Date: 20230328
  Transmission Date: 20230418
  Serious: Yes (Other)
  Sender: FDA-Public Use
  Company Number: MX-JNJFOC-20230345106

PATIENT
  Sex: Female

DRUGS (1)
  1. SPRAVATO [Suspect]
     Active Substance: ESKETAMINE
     Indication: Product used for unknown indication
     Dates: start: 2016

REACTIONS (14)
  - Suicidal ideation [Unknown]
  - Suicide attempt [Unknown]
  - Dependence [Unknown]
  - Hallucination [Unknown]
  - Withdrawal syndrome [Unknown]
  - Hyperhidrosis [Unknown]
  - Hypotension [Unknown]
  - Chills [Unknown]
  - Insomnia [Unknown]
  - Feeling abnormal [Unknown]
  - Nausea [Unknown]
  - Vomiting [Unknown]
  - Headache [Unknown]
  - Confusional state [Unknown]
